FAERS Safety Report 20735485 (Version 2)
Quarter: 2025Q2

REPORT INFORMATION
  Report Type: Spontaneous
  Country: FR (occurrence: FR)
  Receive Date: 20220421
  Receipt Date: 20250620
  Transmission Date: 20250716
  Serious: Yes (Death)
  Sender: MYLAN
  Company Number: FR-PFIZER INC-202200103795

PATIENT
  Age: 64 Year
  Sex: Female

DRUGS (16)
  1. VORICONAZOLE [Suspect]
     Active Substance: VORICONAZOLE
     Indication: Bronchopulmonary aspergillosis
     Dosage: 400 MILLIGRAM, QD (MAINTENANCE DOSE 200 MG TWICE DAILY)
  2. VORICONAZOLE [Suspect]
     Active Substance: VORICONAZOLE
     Dosage: 400 MILLIGRAM, QD (MAINTENANCE DOSE 200 MG TWICE DAILY)
  3. VORICONAZOLE [Suspect]
     Active Substance: VORICONAZOLE
     Dosage: 400 MILLIGRAM, QD (MAINTENANCE DOSE 200 MG TWICE DAILY)
     Route: 042
  4. VORICONAZOLE [Suspect]
     Active Substance: VORICONAZOLE
     Dosage: 400 MILLIGRAM, QD (MAINTENANCE DOSE 200 MG TWICE DAILY)
     Route: 042
  5. VORICONAZOLE [Suspect]
     Active Substance: VORICONAZOLE
     Dosage: 800 MILLIGRAM, QD (LOADING DOSE 400 MG TWO TIMES ON DAY 1)
  6. VORICONAZOLE [Suspect]
     Active Substance: VORICONAZOLE
     Dosage: 800 MILLIGRAM, QD (LOADING DOSE 400 MG TWO TIMES ON DAY 1)
  7. VORICONAZOLE [Suspect]
     Active Substance: VORICONAZOLE
     Dosage: 800 MILLIGRAM, QD (LOADING DOSE 400 MG TWO TIMES ON DAY 1)
     Route: 042
  8. VORICONAZOLE [Suspect]
     Active Substance: VORICONAZOLE
     Dosage: 800 MILLIGRAM, QD (LOADING DOSE 400 MG TWO TIMES ON DAY 1)
     Route: 042
  9. CLAVULANIC ACID [Concomitant]
     Active Substance: CLAVULANIC ACID
     Indication: Hepatic encephalopathy
  10. CLAVULANIC ACID [Concomitant]
     Active Substance: CLAVULANIC ACID
     Indication: Urinary tract infection bacterial
     Route: 065
  11. CLAVULANIC ACID [Concomitant]
     Active Substance: CLAVULANIC ACID
     Route: 065
  12. CLAVULANIC ACID [Concomitant]
     Active Substance: CLAVULANIC ACID
  13. AMOXICILLIN [Concomitant]
     Active Substance: AMOXICILLIN
     Indication: Urinary tract infection bacterial
  14. AMOXICILLIN [Concomitant]
     Active Substance: AMOXICILLIN
     Indication: Hepatic encephalopathy
     Route: 065
  15. AMOXICILLIN [Concomitant]
     Active Substance: AMOXICILLIN
     Route: 065
  16. AMOXICILLIN [Concomitant]
     Active Substance: AMOXICILLIN

REACTIONS (2)
  - Multiple organ dysfunction syndrome [Fatal]
  - Hepatic function abnormal [Fatal]
